FAERS Safety Report 8890933 (Version 2)
Quarter: 2012Q4

REPORT INFORMATION
  Report Type: 
  Country: US (occurrence: US)
  Receive Date: 20121106
  Receipt Date: 20121203
  Transmission Date: 20130627
  Serious: No
  Sender: FDA-Public Use
  Company Number: US-PFIZER INC-2012274753

PATIENT
  Age: 65 Year
  Sex: Male
  Weight: 84.81 kg

DRUGS (3)
  1. SUTENT [Suspect]
  2. TORISEL [Suspect]
     Dosage: UNK
  3. SORAFENIB [Suspect]
     Dosage: UNK

REACTIONS (4)
  - Asthenia [Unknown]
  - Fatigue [Unknown]
  - Disease progression [Unknown]
  - Neoplasm malignant [Unknown]
